FAERS Safety Report 8881151 (Version 1)
Quarter: 2012Q4

REPORT INFORMATION
  Report Type: 
  Country: BE (occurrence: BE)
  Receive Date: 20121031
  Receipt Date: 20121031
  Transmission Date: 20130627
  Serious: Yes (Hospitalization, Other)
  Sender: FDA-Public Use
  Company Number: BE-ROCHE-1077968

PATIENT
  Age: 68 Year
  Sex: Male

DRUGS (14)
  1. ROACTEMRA [Suspect]
     Indication: RHEUMATOID ARTHRITIS
     Route: 042
     Dates: start: 20120113
  2. MEDROL [Concomitant]
     Route: 065
  3. MEDROL [Concomitant]
     Route: 048
  4. MEDROL [Concomitant]
     Route: 048
  5. MABTHERA [Concomitant]
     Route: 042
  6. EMCONCOR [Concomitant]
     Route: 065
  7. PANTOMED [Concomitant]
     Route: 065
  8. PLAVIX [Concomitant]
     Route: 065
  9. ZYLORIC [Concomitant]
     Route: 065
  10. BURINEX [Concomitant]
     Route: 065
  11. ALDACTONE [Concomitant]
     Route: 065
  12. CRESTOR [Concomitant]
     Route: 065
  13. ZESTRIL [Concomitant]
     Route: 065
  14. METFORMAX [Concomitant]
     Route: 065

REACTIONS (3)
  - Gamma-glutamyltransferase increased [Recovered/Resolved]
  - Renal failure acute [Unknown]
  - Drug-induced liver injury [Unknown]
